FAERS Safety Report 4958232-X (Version None)
Quarter: 2006Q1

REPORT INFORMATION
  Report Type: 
  Country: None (occurrence: None)
  Receive Date: 20060330
  Receipt Date: 20060328
  Transmission Date: 20060701
  Serious: Yes (Other)
  Sender: FDA-Public Use
  Company Number: US-GLAXOSMITHKLINE-A0599337A

PATIENT
  Age: 35 Year
  Sex: Female

DRUGS (2)
  1. PAXIL CR [Suspect]
     Indication: DEPRESSION
     Dosage: 25MG FOUR TIMES PER DAY
     Route: 048
     Dates: start: 20060301, end: 20060301
  2. NO CONCURRENT MEDICATION [Concomitant]

REACTIONS (8)
  - DIZZINESS [None]
  - GAIT DISTURBANCE [None]
  - HEADACHE [None]
  - MOOD SWINGS [None]
  - NERVOUSNESS [None]
  - SENSATION OF HEAVINESS [None]
  - SYNCOPE [None]
  - TREMOR [None]
